FAERS Safety Report 5739571-1 (Version None)
Quarter: 2008Q2

REPORT INFORMATION
  Report Type: 
  Country: None (occurrence: None)
  Receive Date: 20080515
  Receipt Date: 20080508
  Transmission Date: 20081010
  Serious: Yes (Other)
  Sender: FDA-Public Use
  Company Number: US-GENENTECH-258629

PATIENT
  Sex: Male
  Weight: 68.027 kg

DRUGS (2)
  1. AVASTIN [Suspect]
     Indication: LUNG NEOPLASM MALIGNANT
     Dosage: 300 MG, Q2W
     Route: 042
     Dates: start: 20080204, end: 20080428
  2. TAXOL [Suspect]
     Indication: DRUG USE FOR UNKNOWN INDICATION
     Dosage: 100 MG, UNK

REACTIONS (1)
  - DERMATITIS [None]
